FAERS Safety Report 24190697 (Version 2)
Quarter: 2024Q3

REPORT INFORMATION
  Report Type: Spontaneous
  Country: US (occurrence: None)
  Receive Date: 20240808
  Receipt Date: 20240824
  Transmission Date: 20241017
  Serious: Yes (Other)
  Sender: ASTRAZENECA
  Company Number: 2024A179502

PATIENT
  Age: 38 Week
  Sex: Female

DRUGS (5)
  1. QUETIAPINE FUMARATE [Suspect]
     Active Substance: QUETIAPINE FUMARATE
     Route: 064
  2. CLONAZEPAM [Suspect]
     Active Substance: CLONAZEPAM
     Route: 064
  3. FLUOXETINE [Suspect]
     Active Substance: FLUOXETINE HYDROCHLORIDE
     Route: 064
  4. INSULIN NOS [Suspect]
     Active Substance: INSULIN NOS
     Route: 064
  5. ZONISAMIDE [Suspect]
     Active Substance: ZONISAMIDE
     Route: 064

REACTIONS (7)
  - Crying [Unknown]
  - Apnoea [Unknown]
  - Apgar score abnormal [Unknown]
  - Hypotonia [Unknown]
  - Tremor [Unknown]
  - Foetal exposure during pregnancy [Unknown]
  - Electroencephalogram abnormal [Unknown]
